FAERS Safety Report 21642729 (Version 3)
Quarter: 2022Q4

REPORT INFORMATION
  Report Type: Spontaneous
  Country: PT (occurrence: CH)
  Receive Date: 20221125
  Receipt Date: 20221208
  Transmission Date: 20230113
  Serious: Yes (Hospitalization, Other)
  Sender: FDA-Public Use
  Company Number: None

PATIENT
  Age: 71 Year
  Sex: Female

DRUGS (31)
  1. ESLICARBAZEPINE ACETATE [Suspect]
     Active Substance: ESLICARBAZEPINE ACETATE
     Indication: Product used for unknown indication
     Dosage: 700 MG, QD
     Route: 065
     Dates: end: 20221020
  2. ESLICARBAZEPINE ACETATE [Suspect]
     Active Substance: ESLICARBAZEPINE ACETATE
     Dosage: 800 MG, QD
     Route: 065
     Dates: start: 20221021
  3. CARBIDOPA AND LEVODOPA [Suspect]
     Active Substance: CARBIDOPA\LEVODOPA
     Indication: Product used for unknown indication
     Dosage: UNK, BID
     Route: 065
     Dates: end: 20221107
  4. PRAMIPEXOLE [Suspect]
     Active Substance: PRAMIPEXOLE
     Indication: Product used for unknown indication
     Dosage: 1.5 MG, BID
     Route: 065
     Dates: end: 20221019
  5. STALEVO [Suspect]
     Active Substance: CARBIDOPA\ENTACAPONE\LEVODOPA
     Indication: Product used for unknown indication
     Dosage: 100/25/200
     Route: 065
     Dates: end: 20221106
  6. STALEVO [Suspect]
     Active Substance: CARBIDOPA\ENTACAPONE\LEVODOPA
     Dosage: 75/18.75/200
     Route: 065
     Dates: start: 20221106
  7. SINEMET [Suspect]
     Active Substance: CARBIDOPA\LEVODOPA
     Indication: Product used for unknown indication
     Dosage: 25/100 MG, QD
     Route: 065
     Dates: start: 20221108
  8. MORPHINE HYDROCHLORIDE [Suspect]
     Active Substance: MORPHINE HYDROCHLORIDE
     Indication: Product used for unknown indication
     Dosage: 2.5 MG, 8 TIMES PER DAY
     Route: 065
     Dates: start: 20221020, end: 20221021
  9. MORPHINE HYDROCHLORIDE [Suspect]
     Active Substance: MORPHINE HYDROCHLORIDE
     Dosage: 2.5 MG, 6 TIMES PER DAY
     Route: 065
     Dates: start: 20221101, end: 20221102
  10. MORPHINE HYDROCHLORIDE [Suspect]
     Active Substance: MORPHINE HYDROCHLORIDE
     Dosage: 5 MG, 6 TIMES PER DAY
     Route: 065
     Dates: start: 20221102, end: 20221108
  11. MORPHINE [Suspect]
     Active Substance: MORPHINE
     Indication: Product used for unknown indication
     Dosage: 10 MG, 6 TIMES A DAY
     Route: 048
     Dates: start: 20221021, end: 20221021
  12. MORPHINE [Suspect]
     Active Substance: MORPHINE
     Dosage: 5 MG, 6 TIMES A DAY
     Route: 048
     Dates: start: 20221022, end: 20221024
  13. MORPHINE [Suspect]
     Active Substance: MORPHINE
     Dosage: 10 MG, AS NECESSARY
     Route: 048
     Dates: start: 20221022, end: 20221026
  14. VENLAFAXINE [Suspect]
     Active Substance: VENLAFAXINE HYDROCHLORIDE
     Indication: Product used for unknown indication
     Dosage: 37.5 MG
     Route: 065
     Dates: end: 20221027
  15. VENLAFAXINE [Suspect]
     Active Substance: VENLAFAXINE HYDROCHLORIDE
     Dosage: 75 MG
     Route: 065
     Dates: start: 20221028
  16. BENSERAZIDE HYDROCHLORIDE\LEVODOPA [Suspect]
     Active Substance: BENSERAZIDE HYDROCHLORIDE\LEVODOPA
     Indication: Product used for unknown indication
     Dosage: 62.5 MG, AS NECESSARY
     Route: 065
  17. MELATONIN [Concomitant]
     Active Substance: MELATONIN
     Dosage: UNK
     Route: 065
  18. Temesta [Concomitant]
     Dosage: UNK
     Route: 065
     Dates: start: 20221027, end: 20221105
  19. LEVOFLOXACIN [Concomitant]
     Active Substance: LEVOFLOXACIN
     Dosage: 500 MG
     Route: 065
     Dates: start: 20220923, end: 20221102
  20. RIFAMPIN [Concomitant]
     Active Substance: RIFAMPIN
     Dosage: UNK
     Route: 065
     Dates: start: 20220923, end: 20221102
  21. EXFORGE HCT [Concomitant]
     Active Substance: AMLODIPINE BESYLATE\HYDROCHLOROTHIAZIDE\VALSARTAN
     Dosage: UNK
     Route: 065
  22. EXFORGE HCT [Concomitant]
     Active Substance: AMLODIPINE BESYLATE\HYDROCHLOROTHIAZIDE\VALSARTAN
     Dosage: UNK
     Route: 065
     Dates: end: 20221106
  23. CLOZAPINE [Concomitant]
     Active Substance: CLOZAPINE
     Dosage: UNK
     Route: 065
     Dates: end: 20221107
  24. AMLODIPINE [Concomitant]
     Active Substance: AMLODIPINE BESYLATE
     Dosage: UNK
     Route: 065
  25. CARVEDILOL [Concomitant]
     Active Substance: CARVEDILOL
     Dosage: UNK
     Route: 065
     Dates: start: 20221029
  26. MOVICOL [Concomitant]
     Active Substance: POLYETHYLENE GLYCOL 3350\POTASSIUM CHLORIDE\SODIUM BICARBONATE\SODIUM CHLORIDE
     Dosage: UNK
     Route: 065
  27. DAFALGAN [Concomitant]
     Active Substance: ACETAMINOPHEN
     Dosage: UNK
     Route: 065
  28. QUETIAPINE [Concomitant]
     Active Substance: QUETIAPINE
     Dosage: UNK
     Route: 065
  29. ONDANSETRON [Concomitant]
     Active Substance: ONDANSETRON
     Dosage: UNK
     Route: 065
  30. SODIUM PICOSULFATE [Concomitant]
     Active Substance: SODIUM PICOSULFATE
     Dosage: UNK
     Route: 065
  31. PREGABALIN [Concomitant]
     Active Substance: PREGABALIN
     Dosage: UNK
     Route: 065
     Dates: end: 202210

REACTIONS (4)
  - Hallucination, auditory [Recovering/Resolving]
  - Hallucination, auditory [Recovering/Resolving]
  - Agitation [Recovering/Resolving]
  - Confusional state [Recovering/Resolving]

NARRATIVE: CASE EVENT DATE: 20221105
